FAERS Safety Report 6934335-5 (Version None)
Quarter: 2010Q3

REPORT INFORMATION
  Report Type: 
  Country: None (occurrence: None)
  Receive Date: 20100820
  Receipt Date: 20100812
  Transmission Date: 20110219
  Serious: Yes (Hospitalization)
  Sender: FDA-Public Use
  Company Number: A0874444A

PATIENT
  Age: 47 Year
  Sex: Male
  Weight: 89.1 kg

DRUGS (4)
  1. ELTROMBOPAG [Suspect]
     Indication: THROMBOCYTOPENIA
     Route: 048
     Dates: start: 20100126, end: 20100608
  2. PEG-INTRON [Suspect]
     Route: 058
     Dates: start: 20100126, end: 20100624
  3. REBETOL [Suspect]
     Route: 048
     Dates: start: 20100126, end: 20100608
  4. ELTROMBOPAG [Suspect]
     Dosage: 25MG PER DAY
     Route: 048
     Dates: start: 20100112, end: 20100125

REACTIONS (2)
  - DYSPNOEA [None]
  - PORTAL VEIN THROMBOSIS [None]
